FAERS Safety Report 22242406 (Version 1)
Quarter: 2023Q2

REPORT INFORMATION
  Report Type: Spontaneous
  Country: US (occurrence: US)
  Receive Date: 20230422
  Receipt Date: 20230422
  Transmission Date: 20230722
  Serious: Yes (Other)
  Sender: FDA-Public Use
  Company Number: US-AMGEN-USASP2023065081

PATIENT
  Age: 77 Year
  Sex: Female

DRUGS (1)
  1. PROLIA [Suspect]
     Active Substance: DENOSUMAB
     Indication: Osteoporosis
     Dosage: UNK
     Route: 058
     Dates: start: 20221222

REACTIONS (11)
  - Neoplasm [Unknown]
  - Swollen tongue [Recovered/Resolved]
  - Scar [Unknown]
  - Abdominal pain [Unknown]
  - Fatigue [Unknown]
  - Oedema peripheral [Unknown]
  - Vomiting [Unknown]
  - Pruritus [Recovered/Resolved]
  - Rash [Unknown]
  - Alopecia [Unknown]
  - Pain in extremity [Unknown]

NARRATIVE: CASE EVENT DATE: 20230412
